FAERS Safety Report 18778339 (Version 1)
Quarter: 2021Q1

REPORT INFORMATION
  Report Type: Report from Study
  Country: None (occurrence: US)
  Receive Date: 20210123
  Receipt Date: 20210123
  Transmission Date: 20210419
  Serious: Yes (Hospitalization, Other)
  Sender: FDA-Public Use
  Company Number: US-ABBVIE-20K-163-3673551-00

PATIENT
  Age: 71 Year
  Sex: Male
  Weight: 78.54 kg

DRUGS (1)
  1. HUMIRA [Suspect]
     Active Substance: ADALIMUMAB
     Indication: CROHN^S DISEASE
     Dosage: CITRATE FREE
     Route: 058
     Dates: start: 20200911, end: 20201204

REACTIONS (3)
  - Post procedural infection [Recovered/Resolved]
  - COVID-19 [Recovered/Resolved]
  - Patella fracture [Recovering/Resolving]

NARRATIVE: CASE EVENT DATE: 20201122
